FAERS Safety Report 11037575 (Version 4)
Quarter: 2016Q3

REPORT INFORMATION
  Report Type: Spontaneous
  Country: NZ (occurrence: NZ)
  Receive Date: 20150416
  Receipt Date: 20160708
  Transmission Date: 20161109
  Serious: Yes (Hospitalization, Other)
  Sender: FDA-Public Use
  Company Number: NZ-SUN PHARMACEUTICAL INDUSTRIES LTD-2015R1-95706

PATIENT
  Age: 55 Year
  Sex: Female

DRUGS (2)
  1. CITALOPRAM [Suspect]
     Active Substance: CITALOPRAM HYDROBROMIDE
     Indication: PRODUCT USED FOR UNKNOWN INDICATION
     Dosage: UNK
     Route: 065
  2. LEVOTHYROXINE. [Suspect]
     Active Substance: LEVOTHYROXINE
     Indication: PRODUCT USED FOR UNKNOWN INDICATION
     Dosage: 900 ?G, 1/WEEK
     Route: 065

REACTIONS (8)
  - Hyperreflexia [Unknown]
  - Dizziness [Recovered/Resolved]
  - Vomiting [Recovered/Resolved]
  - Intentional overdose [Recovered/Resolved]
  - Generalised tonic-clonic seizure [Recovered/Resolved]
  - Depressed level of consciousness [Recovered/Resolved]
  - Confusional state [Recovered/Resolved]
  - Nystagmus [Recovered/Resolved]
